FAERS Safety Report 8239958-1 (Version None)
Quarter: 2012Q1

REPORT INFORMATION
  Report Type: 
  Country: None (occurrence: None)
  Receive Date: 20120309
  Receipt Date: 20110425
  Transmission Date: 20120608
  Serious: Yes (Other)
  Sender: FDA-Public Use
  Company Number: PHHY2011US34017

PATIENT
  Age: 48 Year
  Sex: Male

DRUGS (2)
  1. EXTAVIA [Suspect]
     Indication: MULTIPLE SCLEROSIS
     Dosage: UNK UKN, UNK, SUBCUTANEOUS 0.625 MG, QOD, SUBCUTANEOUS
     Route: 058
     Dates: start: 20110421
  2. EXTAVIA [Suspect]
     Indication: MULTIPLE SCLEROSIS
     Dosage: UNK UKN, UNK, SUBCUTANEOUS 0.625 MG, QOD, SUBCUTANEOUS
     Route: 058
     Dates: start: 20110301

REACTIONS (4)
  - GAIT DISTURBANCE [None]
  - INJECTION SITE REACTION [None]
  - MULTIPLE SCLEROSIS RELAPSE [None]
  - SPEECH DISORDER [None]
